FAERS Safety Report 5313567-6 (Version None)
Quarter: 2007Q2

REPORT INFORMATION
  Report Type: 
  Country: None (occurrence: None)
  Receive Date: 20070501
  Receipt Date: 20060523
  Transmission Date: 20071010
  Serious: No
  Sender: FDA-Public Use
  Company Number: 2006UW10076

PATIENT
  Age: 55 Year
  Sex: Female
  Weight: 60.8 kg

DRUGS (1)
  1. ENTOCORT EC [Suspect]
     Indication: CROHN'S DISEASE
     Route: 048

REACTIONS (3)
  - ANXIETY [None]
  - BLOOD GLUCOSE INCREASED [None]
  - NIGHT SWEATS [None]
